FAERS Safety Report 4374052-1 (Version None)
Quarter: 2004Q2

REPORT INFORMATION
  Report Type: 
  Country: None (occurrence: None)
  Receive Date: 20040607
  Receipt Date: 20040525
  Transmission Date: 20050107
  Serious: Yes (Hospitalization)
  Sender: FDA-Public Use
  Company Number: AT-AMGEN-US078177

PATIENT
  Sex: Male

DRUGS (4)
  1. ENBREL [Suspect]
     Indication: DRUG USE FOR UNKNOWN INDICATION
     Route: 058
  2. PLAVIX [Concomitant]
  3. ASPIRIN [Concomitant]
  4. MORPHINE [Concomitant]

REACTIONS (1)
  - JUGULAR VEIN THROMBOSIS [None]
